FAERS Safety Report 7631970-6 (Version None)
Quarter: 2011Q3

REPORT INFORMATION
  Report Type: 
  Country: None (occurrence: None)
  Receive Date: 20110725
  Receipt Date: 20110517
  Transmission Date: 20111222
  Serious: No
  Sender: FDA-Public Use
  Company Number: US-BRISTOL-MYERS SQUIBB COMPANY-15751340

PATIENT
  Age: 82 Year
  Sex: Female

DRUGS (1)
  1. COUMADIN [Suspect]
     Dates: start: 20081201

REACTIONS (3)
  - ALOPECIA [None]
  - NAUSEA [None]
  - DECREASED APPETITE [None]
